FAERS Safety Report 5067568-6 (Version None)
Quarter: 2006Q3

REPORT INFORMATION
  Report Type: 
  Country: None (occurrence: None)
  Receive Date: 20060802
  Receipt Date: 20060718
  Transmission Date: 20061208
  Serious: Yes (Life-Threatening, Hospitalization, Disabling)
  Sender: FDA-Public Use
  Company Number: DE-BAYER-200613039GDS

PATIENT
  Age: 64 Year
  Sex: Female

DRUGS (1)
  1. ASPIRIN [Suspect]
     Indication: DRUG USE FOR UNKNOWN INDICATION
     Route: 048

REACTIONS (6)
  - BRAIN HYPOXIA [None]
  - CARDIAC ARREST [None]
  - COMA [None]
  - DYSPNOEA [None]
  - INTUBATION COMPLICATION [None]
  - POST PROCEDURAL HAEMORRHAGE [None]
